FAERS Safety Report 7413608-6 (Version None)
Quarter: 2011Q2

REPORT INFORMATION
  Report Type: 
  Country: None (occurrence: None)
  Receive Date: 20110413
  Receipt Date: 20110406
  Transmission Date: 20111010
  Serious: Yes (Life-Threatening, Hospitalization, Other)
  Sender: FDA-Public Use
  Company Number: FR-GENZYME-THYM-1002316

PATIENT

DRUGS (6)
  1. THYMOGLOBULIN [Suspect]
     Dosage: 315 MG, ONCE
     Route: 042
     Dates: start: 20110220, end: 20110220
  2. GRANOCYTE [Concomitant]
     Indication: PRODUCT USED FOR UNKNOWN INDICATION
     Dosage: 1 UNK, UNK
     Route: 058
  3. CYCLOSPORINE [Concomitant]
     Indication: PRODUCT USED FOR UNKNOWN INDICATION
     Dosage: 90 MG/KG, BID
     Route: 042
  4. THYMOGLOBULIN [Suspect]
     Indication: BONE MARROW FAILURE
     Dosage: 315 MG, ONCE
     Dates: start: 20110219, end: 20110219
  5. SOLU-MEDROL [Concomitant]
     Indication: PREMEDICATION
     Dosage: 2 MG/KG, QD
  6. POLARAMINE [Concomitant]
     Indication: PREMEDICATION

REACTIONS (9)
  - DRUG ADMINISTRATION ERROR [None]
  - OVERDOSE [None]
  - LEUKOPENIA [None]
  - PLATELET COUNT DECREASED [None]
  - SERUM SICKNESS [None]
  - GENERALISED ERYTHEMA [None]
  - BLOOD PRESSURE DECREASED [None]
  - LIP OEDEMA [None]
  - VOMITING [None]
